FAERS Safety Report 8465665-6 (Version None)
Quarter: 2012Q2

REPORT INFORMATION
  Report Type: 
  Country: None (occurrence: None)
  Receive Date: 20120619
  Receipt Date: 20120604
  Transmission Date: 20120825
  Serious: Yes (Other)
  Sender: FDA-Public Use
  Company Number: JPI-P-021879

PATIENT
  Age: 63 Year
  Sex: Female
  Weight: 64.5922 kg

DRUGS (7)
  1. XYREM [Suspect]
     Indication: NARCOLEPSY
     Dosage: SEE IMAGE
     Route: 048
     Dates: start: 20080312, end: 20080319
  2. XYREM [Suspect]
     Indication: NARCOLEPSY
     Dosage: SEE IMAGE
     Route: 048
     Dates: start: 20080328
  3. XYREM [Suspect]
     Indication: NARCOLEPSY
     Dosage: SEE IMAGE
     Route: 048
     Dates: start: 20080304, end: 20080311
  4. HYDROCODONE BITARTRATE + ACETAMINOPHEN [Concomitant]
  5. MODAFINIL [Concomitant]
  6. ASPIRIN [Concomitant]
  7. FOLIC ACID [Concomitant]

REACTIONS (8)
  - POOR QUALITY SLEEP [None]
  - EPISTAXIS [None]
  - SOMNOLENCE [None]
  - HEART RATE INCREASED [None]
  - HYPERSOMNIA [None]
  - LOSS OF CONSCIOUSNESS [None]
  - CYSTITIS [None]
  - DYSPNOEA [None]
